FAERS Safety Report 8180090-3 (Version None)
Quarter: 2012Q1

REPORT INFORMATION
  Report Type: 
  Country: None (occurrence: None)
  Receive Date: 20120302
  Receipt Date: 20120302
  Transmission Date: 20120608
  Serious: Yes (Other)
  Sender: FDA-Public Use
  Company Number: None

PATIENT
  Sex: Female

DRUGS (1)
  1. INVEGA [Suspect]
     Dosage: 1 TABLET
     Route: 048

REACTIONS (3)
  - BOWEL MOVEMENT IRREGULARITY [None]
  - PRODUCT SOLUBILITY ABNORMAL [None]
  - CONSTIPATION [None]
